FAERS Safety Report 14588210 (Version 1)
Quarter: 2018Q1

REPORT INFORMATION
  Report Type: Spontaneous
  Country: KZ (occurrence: KZ)
  Receive Date: 20180301
  Receipt Date: 20180301
  Transmission Date: 20180509
  Serious: Yes (Hospitalization, Other)
  Sender: FDA-Public Use
  Company Number: KZ-BAYER-2018-008629

PATIENT
  Age: 28 Year
  Sex: Female
  Weight: 68 kg

DRUGS (1)
  1. YAZ [Suspect]
     Active Substance: DROSPIRENONE\ETHINYL ESTRADIOL
     Dosage: UNK
     Route: 048
     Dates: start: 201711, end: 20180112

REACTIONS (11)
  - Pulmonary embolism [None]
  - Pain in extremity [None]
  - Peripheral swelling [None]
  - Palpitations [None]
  - Dyspnoea [None]
  - Product use in unapproved indication [None]
  - Pneumonia [None]
  - Deep vein thrombosis [None]
  - Tachycardia [None]
  - Off label use [None]
  - Gait disturbance [None]

NARRATIVE: CASE EVENT DATE: 20180106
